FAERS Safety Report 4967382-3 (Version None)
Quarter: 2006Q2

REPORT INFORMATION
  Report Type: 
  Country: None (occurrence: None)
  Receive Date: 20060407
  Receipt Date: 20060407
  Transmission Date: 20061013
  Serious: Yes (Death)
  Sender: FDA-Public Use
  Company Number: None

PATIENT
  Sex: Female
  Weight: 61.2356 kg

DRUGS (9)
  1. ABRAXANE [Suspect]
     Indication: LUNG NEOPLASM MALIGNANT
     Dosage: 190 MG D1, D8 Q 21 D IV
     Route: 042
     Dates: start: 20051122, end: 20060221
  2. CARBOPLATIN [Suspect]
     Indication: LUNG NEOPLASM MALIGNANT
     Dosage: 540 MG D 1 Q 21 D IV
     Route: 042
     Dates: start: 20051122, end: 20060214
  3. PLAVIX [Concomitant]
  4. ZOCOR [Concomitant]
  5. ANZEMENT [Concomitant]
  6. DEXAMETHASONE [Concomitant]
  7. MARINOL [Concomitant]
  8. LEXAPRO [Concomitant]
  9. XANAX [Concomitant]

REACTIONS (5)
  - ACUTE MYOCARDIAL INFARCTION [None]
  - DEPRESSION [None]
  - DYSPNOEA [None]
  - PULMONARY EMBOLISM [None]
  - SUDDEN DEATH [None]
